FAERS Safety Report 7001227-5 (Version None)
Quarter: 2010Q3

REPORT INFORMATION
  Report Type: 
  Country: None (occurrence: None)
  Receive Date: 20100920
  Receipt Date: 20070629
  Transmission Date: 20110219
  Serious: Yes (Other)
  Sender: FDA-Public Use
  Company Number: US-ASTRAZENECA-2006UW21775

PATIENT
  Sex: Female
  Weight: 90.7 kg

DRUGS (16)
  1. SEROQUEL [Suspect]
     Indication: DEPRESSION
     Route: 048
     Dates: start: 20040505
  2. SEROQUEL [Suspect]
     Route: 048
  3. LEVOTHYROXINE [Concomitant]
     Indication: WEIGHT CONTROL
     Route: 048
  4. CLOZARIL [Concomitant]
  5. RISPERDAL [Concomitant]
  6. ZOLOFT [Concomitant]
     Dosage: STRENGTH- 25 MG, 50 MG  DOSE- 25-50 MG
     Dates: start: 20040505
  7. HYDROCHLOROTHIAZIDE [Concomitant]
     Indication: HYPERTENSION
     Dates: start: 20040505
  8. VISTARIL [Concomitant]
     Indication: INSOMNIA
     Dosage: STRENGTH- 50 MG, 100 MG  DOSE- 50- 100 MG
     Dates: start: 20040505
  9. VISTARIL [Concomitant]
     Indication: ANXIETY
     Dosage: STRENGTH- 50 MG, 100 MG  DOSE- 50- 100 MG
     Dates: start: 20040505
  10. AMBIEN [Concomitant]
     Indication: INSOMNIA
     Dates: start: 20040505
  11. PHENERGAN [Concomitant]
     Indication: PAIN
     Route: 030
     Dates: start: 20040505
  12. PHENERGAN [Concomitant]
     Indication: NAUSEA
     Route: 030
     Dates: start: 20040505
  13. CLONIDINE [Concomitant]
     Dosage: 0.1 - 0.3 MG DAILY
     Dates: start: 20040505
  14. PROTONIX [Concomitant]
     Dates: start: 20040505
  15. VIOXX [Concomitant]
     Dates: start: 20040505
  16. COLACE [Concomitant]
     Dates: start: 20040505

REACTIONS (2)
  - DIABETES MELLITUS [None]
  - DIABETIC COMA [None]
